FAERS Safety Report 13240439 (Version 2)
Quarter: 2017Q1

REPORT INFORMATION
  Report Type: Spontaneous
  Country: US (occurrence: US)
  Receive Date: 20170216
  Receipt Date: 20170329
  Transmission Date: 20170428
  Serious: No
  Sender: FDA-Public Use
  Company Number: US-009507513-1702USA001759

PATIENT
  Sex: Male

DRUGS (1)
  1. NEXPLANON [Suspect]
     Active Substance: ETONOGESTREL
     Indication: CONTRACEPTION
     Dosage: UNK
     Dates: start: 20170202

REACTIONS (3)
  - Product physical issue [Unknown]
  - Injury associated with device [Unknown]
  - No adverse event [Unknown]

NARRATIVE: CASE EVENT DATE: 20170202
